FAERS Safety Report 8247954 (Version 8)
Quarter: 2013Q3

REPORT INFORMATION
  Report Type: Report from Study
  Country: US (occurrence: US)
  Receive Date: 20111116
  Receipt Date: 20130717
  Transmission Date: 20140515
  Serious: Yes (Hospitalization, Other)
  Sender: FDA-Public Use
  Company Number: US-ELI_LILLY_AND_COMPANY-US201111003317

PATIENT
  Age: 80 Year
  Sex: Female

DRUGS (24)
  1. TERIPARATIDE [Suspect]
     Indication: OSTEOPOROSIS
     Dosage: 20 UG, QD
     Route: 058
     Dates: start: 201108
  2. TERIPARATIDE [Suspect]
     Dosage: 20 UG, QD
     Route: 058
  3. TERIPARATIDE [Suspect]
     Dosage: 20 UG, QD
     Route: 058
  4. TERIPARATIDE [Suspect]
     Dosage: 20 UG, QD
     Route: 058
  5. TERIPARATIDE [Suspect]
     Dosage: 20 UG, QD
     Route: 058
  6. TERIPARATIDE [Suspect]
     Dosage: 20 UG, QD
     Route: 058
  7. TERIPARATIDE [Suspect]
     Dosage: 20 UG, QD
     Route: 058
  8. TERIPARATIDE [Suspect]
     Dosage: 20 UG, QD
     Route: 058
  9. MORPHINE [Concomitant]
  10. LANTUS [Concomitant]
  11. HYZAAR [Concomitant]
  12. JANUVIA [Concomitant]
  13. BABY ASPIRIN [Concomitant]
  14. IRON [Concomitant]
  15. ZOCOR [Concomitant]
  16. PRILOSEC [Concomitant]
  17. PREDNISONE [Concomitant]
  18. CALCIUM [Concomitant]
  19. VITAMIN C [Concomitant]
  20. MULTIVITAMIN [Concomitant]
  21. PERCOCET                           /00446701/ [Concomitant]
     Indication: PAIN
     Dosage: UNK, PRN
  22. OXYCONTIN [Concomitant]
     Indication: PAIN
     Dosage: UNK, PRN
  23. MIRALAX [Concomitant]
  24. VITAMIN D [Concomitant]
     Dosage: UNK

REACTIONS (19)
  - Osteoarthritis [Unknown]
  - Feeling abnormal [Unknown]
  - Overdose [Unknown]
  - Fall [Unknown]
  - Upper limb fracture [Unknown]
  - Breast pain [Not Recovered/Not Resolved]
  - Skin disorder [Unknown]
  - Pneumonia [Unknown]
  - Rash [Not Recovered/Not Resolved]
  - Dizziness [Unknown]
  - Nausea [Unknown]
  - Blood calcium increased [Recovered/Resolved]
  - Hepatic enzyme abnormal [Unknown]
  - Laboratory test abnormal [Unknown]
  - Nausea [Not Recovered/Not Resolved]
  - Vomiting [Recovered/Resolved]
  - Constipation [Unknown]
  - Pain [Not Recovered/Not Resolved]
  - Wrist fracture [Unknown]
